FAERS Safety Report 15788214 (Version 1)
Quarter: 2019Q1

REPORT INFORMATION
  Report Type: Spontaneous
  Country: KR (occurrence: KR)
  Receive Date: 20190104
  Receipt Date: 20190104
  Transmission Date: 20190417
  Serious: Yes (Other)
  Sender: FDA-Public Use
  Company Number: KR-REGENERON PHARMACEUTICALS, INC.-2018-50813

PATIENT

DRUGS (1)
  1. AFLIBERCEPT IAI [Suspect]
     Active Substance: AFLIBERCEPT
     Indication: DIABETIC RETINAL OEDEMA
     Dosage: RECEIVED  5 AND 6 IVA INJECTIONS RESPECTIVELY IN BOTH EYES OVER A 6-MONTH PERIOD
     Route: 031

REACTIONS (1)
  - Macular degeneration [Unknown]
